FAERS Safety Report 5639600-X (Version None)
Quarter: 2008Q1

REPORT INFORMATION
  Report Type: 
  Country: None (occurrence: None)
  Receive Date: 20080131
  Receipt Date: 20071108
  Transmission Date: 20080703
  Serious: Yes (Disabling)
  Sender: FDA-Public Use
  Company Number: 163-21880-07110461

PATIENT
  Age: 59 Year
  Sex: Male
  Weight: 86.2 kg

DRUGS (5)
  1. REVLIMID [Suspect]
     Indication: MYELODYSPLASTIC SYNDROME
     Dosage: 5 MG, QD X21, DAYS, ORAL
     Route: 048
     Dates: start: 20070618, end: 20071026
  2. VIDAZA [Suspect]
     Indication: MYELODYSPLASTIC SYNDROME
     Dosage: 4 SHOTS/DAY X5 DAYS, INFECTION
  3. GRANISETRON (GRANISETRON) (TABLETS) [Concomitant]
  4. OMEPRAZOLE [Concomitant]
  5. ACETAMINOPHEN [Concomitant]

REACTIONS (1)
  - BLINDNESS UNILATERAL [None]
